FAERS Safety Report 15343316 (Version 1)
Quarter: 2018Q3

REPORT INFORMATION
  Report Type: Spontaneous
  Country: GB (occurrence: GB)
  Receive Date: 20180903
  Receipt Date: 20180903
  Transmission Date: 20181010
  Serious: Yes (Other)
  Sender: FDA-Public Use
  Company Number: GB-AMGEN-GBRSP2018121464

PATIENT
  Age: 53 Year
  Sex: Female

DRUGS (1)
  1. ENBREL [Suspect]
     Active Substance: ETANERCEPT
     Indication: PSORIATIC ARTHROPATHY
     Dosage: 1 PEN, WEEKLY
     Route: 058

REACTIONS (3)
  - Dysphonia [Not Recovered/Not Resolved]
  - Drug ineffective [Unknown]
  - Lower respiratory tract infection [Not Recovered/Not Resolved]
